FAERS Safety Report 17751316 (Version 3)
Quarter: 2020Q4

REPORT INFORMATION
  Report Type: Spontaneous
  Country: US (occurrence: US)
  Receive Date: 20200506
  Receipt Date: 20201103
  Transmission Date: 20210113
  Serious: Yes (Hospitalization, Other)
  Sender: FDA-Public Use
  Company Number: US-GILEAD-2020-0464283

PATIENT
  Age: 63 Year
  Sex: Male

DRUGS (2)
  1. ATRIPLA [Suspect]
     Active Substance: EFAVIRENZ\EMTRICITABINE\TENOFOVIR DISOPROXIL FUMARATE
     Indication: HIV INFECTION
     Dosage: UNK
     Route: 048
     Dates: start: 20120512, end: 201310
  2. ATRIPLA [Suspect]
     Active Substance: EFAVIRENZ\EMTRICITABINE\TENOFOVIR DISOPROXIL FUMARATE
     Dosage: UNK
     Route: 048
     Dates: start: 20120512, end: 201310

REACTIONS (12)
  - Intervertebral discitis [Recovered/Resolved]
  - Staphylococcal bacteraemia [Recovered/Resolved]
  - Toxic encephalopathy [Recovered/Resolved]
  - Hyperkalaemia [Recovered/Resolved]
  - Renal failure [Not Recovered/Not Resolved]
  - Chronic kidney disease [Not Recovered/Not Resolved]
  - Device related bacteraemia [Recovered/Resolved]
  - Azotaemia [Recovered/Resolved]
  - Renal tubular necrosis [Recovered/Resolved]
  - End stage renal disease [Recovered/Resolved]
  - Osteomyelitis [Recovered/Resolved]
  - Acute kidney injury [Recovered/Resolved]

NARRATIVE: CASE EVENT DATE: 20131003
